FAERS Safety Report 5116355-9 (Version None)
Quarter: 2006Q3

REPORT INFORMATION
  Report Type: 
  Country: None (occurrence: None)
  Receive Date: 20060928
  Receipt Date: 20060919
  Transmission Date: 20061208
  Serious: Yes (Other)
  Sender: FDA-Public Use
  Company Number: PHBS2006BR14535

PATIENT
  Age: 42 Year
  Sex: Female
  Weight: 62 kg

DRUGS (1)
  1. CODATEN [Suspect]
     Indication: PAIN
     Dosage: UNK, Q12H
     Route: 048
     Dates: start: 20060914, end: 20060917

REACTIONS (7)
  - ABDOMINAL PAIN UPPER [None]
  - ANOREXIA [None]
  - COORDINATION ABNORMAL [None]
  - DIZZINESS [None]
  - MALAISE [None]
  - NAUSEA [None]
  - TREMOR [None]
